FAERS Safety Report 6126908-7 (Version None)
Quarter: 2009Q1

REPORT INFORMATION
  Report Type: 
  Country: None (occurrence: None)
  Receive Date: 20090320
  Receipt Date: 20081217
  Transmission Date: 20090719
  Serious: No
  Sender: FDA-Public Use
  Company Number: US-ABBOTT-08P-163-0493519-00

PATIENT
  Sex: Female
  Weight: 58.112 kg

DRUGS (1)
  1. ERYTHROMYCIN [Suspect]
     Indication: UPPER RESPIRATORY TRACT INFECTION
     Dates: start: 20080201, end: 20080201

REACTIONS (1)
  - RASH [None]
